FAERS Safety Report 19061381 (Version 1)
Quarter: 2021Q1

REPORT INFORMATION
  Report Type: Report from Study
  Country: US (occurrence: US)
  Receive Date: 20210325
  Receipt Date: 20210325
  Transmission Date: 20210420
  Serious: Yes (Death, Hospitalization, Other)
  Sender: FDA-Public Use
  Company Number: US-B.I. PHARMACEUTICALS,INC./RIDGEFIELD-2020-MR-040533

PATIENT
  Age: 59 Year
  Sex: Male
  Weight: 74.8 kg

DRUGS (1)
  1. OFEV [Suspect]
     Active Substance: NINTEDANIB
     Indication: IDIOPATHIC PULMONARY FIBROSIS
     Dosage: 150 MG BY MOUTH TWICE DAILY
     Route: 048
     Dates: start: 20180530, end: 20210123

REACTIONS (3)
  - Idiopathic pulmonary fibrosis [Fatal]
  - Pneumonia [Fatal]
  - Pneumonia [Recovered/Resolved]

NARRATIVE: CASE EVENT DATE: 20200720
